FAERS Safety Report 20579055 (Version 1)
Quarter: 2022Q1

REPORT INFORMATION
  Report Type: Other
  Country: None (occurrence: GR)
  Receive Date: 20220310
  Receipt Date: 20220310
  Transmission Date: 20220424
  Serious: Yes (Other)
  Sender: FDA-Public Use
  Company Number: GR-B.Braun Medical Inc.-2126652

PATIENT
  Age: 78 Year
  Sex: Female

DRUGS (1)
  1. CEFUROXIME SODIUM [Suspect]
     Active Substance: CEFUROXIME SODIUM

REACTIONS (2)
  - Retinal toxicity [Recovered/Resolved]
  - Off label use [Recovered/Resolved]
